FAERS Safety Report 18298490 (Version 3)
Quarter: 2022Q1

REPORT INFORMATION
  Report Type: Spontaneous
  Country: US (occurrence: US)
  Receive Date: 20200923
  Receipt Date: 20220208
  Transmission Date: 20220423
  Serious: Yes (Other)
  Sender: FDA-Public Use
  Company Number: US-CELLTRION INC.-2019US023439

PATIENT

DRUGS (2)
  1. INFLECTRA [Suspect]
     Active Substance: INFLIXIMAB-DYYB
     Indication: Crohn^s disease
     Dosage: UNK, CYCLIC
     Route: 065
  2. INFLECTRA [Suspect]
     Active Substance: INFLIXIMAB-DYYB
     Dosage: UNK, EVERY 6 WEEKS
     Route: 065

REACTIONS (6)
  - COVID-19 [Unknown]
  - Drug level decreased [Unknown]
  - Off label use [Unknown]
  - Intentional dose omission [Unknown]
  - Intentional dose omission [Unknown]
  - Product dose omission issue [Unknown]
